FAERS Safety Report 4317976-3 (Version None)
Quarter: 2004Q1

REPORT INFORMATION
  Report Type: 
  Country: None (occurrence: None)
  Receive Date: 20040316
  Receipt Date: 20040304
  Transmission Date: 20041129
  Serious: Yes (Death, Hospitalization)
  Sender: FDA-Public Use
  Company Number: PHBS2004CA03134

PATIENT
  Age: 57 Year
  Sex: Female

DRUGS (10)
  1. IMATINIB [Suspect]
     Indication: BLAST CELL CRISIS
     Dosage: 600 MG, QD
     Route: 048
  2. CYCLOPHOSPHAMIDE [Concomitant]
     Dosage: 60 MG/KG/DAY
  3. CYCLOSPORINE [Suspect]
     Indication: STEM CELL TRANSPLANT
     Route: 065
  4. METHOTREXATE [Concomitant]
     Route: 065
  5. METHOTREXATE [Concomitant]
     Dosage: UNK, UNK
     Route: 037
  6. PREDNISONE [Concomitant]
     Dosage: 7.5 MG/DAY
  7. PREDNISONE [Concomitant]
     Dosage: 75 MG/DAY
  8. ETOPOSIDE [Concomitant]
     Dosage: 100 MG, QD
  9. CYTARABINE [Concomitant]
     Route: 037
  10. HYDROCORTISONE [Concomitant]
     Route: 037

REACTIONS (8)
  - CHROMOSOME ANALYSIS ABNORMAL [None]
  - FEBRILE NEUTROPENIA [None]
  - GRAFT VERSUS HOST DISEASE [None]
  - HEADACHE [None]
  - HEPATIC FAILURE [None]
  - INFECTION [None]
  - LEUKAEMIA RECURRENT [None]
  - STAPHYLOCOCCAL INFECTION [None]
